FAERS Safety Report 15727526 (Version 4)
Quarter: 2025Q2

REPORT INFORMATION
  Report Type: Spontaneous
  Country: JP (occurrence: JP)
  Receive Date: 20181217
  Receipt Date: 20250626
  Transmission Date: 20250717
  Serious: Yes (Death)
  Sender: ROCHE
  Company Number: JP-CHUGAI-A2018052521ROCHE

PATIENT
  Age: 62 Year
  Sex: Male
  Weight: 57 kg

DRUGS (3)
  1. ACTEMRA [Suspect]
     Active Substance: TOCILIZUMAB
     Indication: Rheumatoid arthritis
     Route: 042
     Dates: start: 201802, end: 201802
  2. CELECOXIB [Concomitant]
     Active Substance: CELECOXIB
     Route: 048
  3. PREDNISOLONE [Concomitant]
     Active Substance: PREDNISOLONE
     Route: 048

REACTIONS (3)
  - Lung disorder [Fatal]
  - Interstitial lung disease [Fatal]
  - Off label use [Unknown]
